FAERS Safety Report 5035103-4 (Version None)
Quarter: 2006Q2

REPORT INFORMATION
  Report Type: 
  Country: None (occurrence: None)
  Receive Date: 20060627
  Receipt Date: 20060518
  Transmission Date: 20061013
  Serious: Yes (Hospitalization, Other)
  Sender: FDA-Public Use
  Company Number: PHBS2006JP07624

PATIENT
  Age: 75 Year
  Sex: Female
  Weight: 58 kg

DRUGS (10)
  1. CONIEL [Concomitant]
     Indication: HYPERTENSION
     Dosage: 8 MG, UNK
     Route: 048
     Dates: start: 20040813
  2. PREDNISOLONE [Concomitant]
     Indication: ASTHMA
     Dosage: 10 MG, UNK
     Route: 048
     Dates: start: 20040813
  3. ONON [Concomitant]
     Indication: ASTHMA
     Dosage: 450 MG, UNK
     Route: 048
     Dates: start: 20040813, end: 20060506
  4. GASTER [Concomitant]
     Indication: GASTRITIS
     Dosage: 20 MG, UNK
     Route: 048
     Dates: start: 20040813
  5. HYPEN [Concomitant]
     Indication: MUSCULOSKELETAL PAIN
     Dosage: 400 MG, UNK
     Route: 048
     Dates: start: 20040813
  6. TRYPTANOL [Concomitant]
     Indication: DYSTHYMIC DISORDER
     Dosage: 10 MG, UNK
     Route: 048
     Dates: start: 20040813, end: 20060506
  7. LEVOTOMIN [Concomitant]
     Indication: DYSTHYMIC DISORDER
     Dosage: 10 MG, UNK
     Route: 048
     Dates: start: 20040813, end: 20060506
  8. MEILAX [Concomitant]
     Indication: DYSTHYMIC DISORDER
     Dosage: 2 MG, UNK
     Route: 048
     Dates: start: 20040813, end: 20060506
  9. DIOVAN [Suspect]
     Dosage: 80 MG/DAY
     Route: 048
     Dates: start: 20051209, end: 20060506
  10. CRESTOR [Suspect]
     Indication: HYPERLIPIDAEMIA
     Dosage: 2.5 MG/DAY
     Route: 048
     Dates: start: 20060427, end: 20060506

REACTIONS (15)
  - BLOOD ALBUMIN DECREASED [None]
  - BLOOD CHOLESTEROL INCREASED [None]
  - BLOOD CREATININE INCREASED [None]
  - BLOOD POTASSIUM INCREASED [None]
  - BLOOD SODIUM DECREASED [None]
  - BLOOD UREA INCREASED [None]
  - DIALYSIS [None]
  - FALL [None]
  - GENERALISED OEDEMA [None]
  - HEAD DISCOMFORT [None]
  - PELVIC FRACTURE [None]
  - PLEURAL EFFUSION [None]
  - PULMONARY OEDEMA [None]
  - RENAL FAILURE ACUTE [None]
  - SOMNOLENCE [None]
